FAERS Safety Report 14944783 (Version 1)
Quarter: 2018Q2

REPORT INFORMATION
  Report Type: Spontaneous
  Country: US (occurrence: US)
  Receive Date: 20180529
  Receipt Date: 20180529
  Transmission Date: 20180711
  Serious: Yes (Other)
  Sender: FDA-Public Use
  Company Number: US-ROCHE-1886286

PATIENT
  Sex: Male
  Weight: 106.69 kg

DRUGS (4)
  1. ESBRIET [Suspect]
     Active Substance: PIRFENIDONE
     Dosage: ONGOING: NO, 9 CAPSULES A DAY (EACH CAPSULE 267MG)
     Route: 048
     Dates: start: 201702, end: 2017
  2. ESBRIET [Suspect]
     Active Substance: PIRFENIDONE
     Indication: IDIOPATHIC PULMONARY FIBROSIS
     Route: 048
     Dates: start: 20161230
  3. OXYGEN. [Concomitant]
     Active Substance: OXYGEN
     Route: 055
  4. ESBRIET [Suspect]
     Active Substance: PIRFENIDONE
     Route: 048
     Dates: start: 20170207

REACTIONS (10)
  - Interstitial lung disease [Unknown]
  - Weight decreased [Not Recovered/Not Resolved]
  - Somnolence [Recovered/Resolved]
  - Dyspnoea [Not Recovered/Not Resolved]
  - Decreased appetite [Not Recovered/Not Resolved]
  - Diarrhoea [Unknown]
  - Dyspepsia [Recovered/Resolved with Sequelae]
  - Fatigue [Not Recovered/Not Resolved]
  - Body height decreased [Unknown]
  - Fall [Unknown]

NARRATIVE: CASE EVENT DATE: 2017
